FAERS Safety Report 18318012 (Version 1)
Quarter: 2020Q3

REPORT INFORMATION
  Report Type: Spontaneous
  Country: US (occurrence: US)
  Receive Date: 20200925
  Receipt Date: 20200925
  Transmission Date: 20201103
  Serious: Yes (Other)
  Sender: FDA-Public Use
  Company Number: None

PATIENT
  Age: 58 Year
  Sex: Female

DRUGS (2)
  1. BIJUVA [Suspect]
     Active Substance: ESTRADIOL\PROGESTERONE
     Route: 048
     Dates: start: 20200919, end: 20200922
  2. TOPIRAMAT 25MG [Concomitant]

REACTIONS (4)
  - Seizure [None]
  - Blood pressure increased [None]
  - Heart rate increased [None]
  - Cold sweat [None]

NARRATIVE: CASE EVENT DATE: 20200922
